FAERS Safety Report 4536966-9 (Version None)
Quarter: 2004Q4

REPORT INFORMATION
  Report Type: 
  Country: None (occurrence: None)
  Receive Date: 20041220
  Receipt Date: 20041208
  Transmission Date: 20050328
  Serious: Yes (Life-Threatening, Other)
  Sender: FDA-Public Use
  Company Number: 2004105784

PATIENT
  Age: 55 Year
  Sex: Female

DRUGS (6)
  1. ZYRTEC [Suspect]
     Indication: PRURITUS
     Dosage: 30 MG, ORAL
     Route: 048
     Dates: start: 20030911, end: 20031105
  2. XANAX [Suspect]
     Indication: ILL-DEFINED DISORDER
     Dosage: 0.5 MG, ORAL
     Route: 048
  3. ATARAX [Suspect]
     Indication: ILL-DEFINED DISORDER
     Dosage: 50 MG, ORAL
     Route: 048
  4. SIMVASTATIN [Suspect]
     Indication: ILL-DEFINED DISORDER
     Dosage: 1 DOSAGE FORM, ORAL
     Route: 048
  5. TIANEPTINE (TIANEPTINE) [Suspect]
     Indication: ILL-DEFINED DISORDER
     Dosage: 25 MG, ORAL
     Route: 048
  6. BENFLUOREX HYDROCHLORIDE (BENFLUOREX HYDROCHLORIDE) [Suspect]
     Indication: ILL-DEFINED DISORDER
     Dosage: 300 MG, ORAL
     Route: 048

REACTIONS (8)
  - CARDIAC ARREST [None]
  - HYPOKALAEMIA [None]
  - LOSS OF CONSCIOUSNESS [None]
  - MEDICATION ERROR [None]
  - OVERDOSE [None]
  - PROCEDURAL COMPLICATION [None]
  - SELF-MEDICATION [None]
  - TORSADE DE POINTES [None]
